FAERS Safety Report 14385954 (Version 1)
Quarter: 2018Q1

REPORT INFORMATION
  Report Type: Report from Study
  Country: US (occurrence: US)
  Receive Date: 20180115
  Receipt Date: 20180115
  Transmission Date: 20180509
  Serious: Yes (Death)
  Sender: FDA-Public Use
  Company Number: US-BAYER-2017-250029

PATIENT
  Age: 76 Year
  Sex: Female
  Weight: 43.99 kg

DRUGS (1)
  1. ADEMPAS [Suspect]
     Active Substance: RIOCIGUAT
     Indication: PULMONARY HYPERTENSION
     Dosage: 1 MG, TID
     Route: 048
     Dates: start: 20171215

REACTIONS (3)
  - Dyspnoea exertional [None]
  - Exercise tolerance decreased [None]
  - Death [Fatal]

NARRATIVE: CASE EVENT DATE: 201712
